FAERS Safety Report 5441280-3 (Version None)
Quarter: 2007Q3

REPORT INFORMATION
  Report Type: 
  Country: None (occurrence: None)
  Receive Date: 20070901
  Receipt Date: 20070821
  Transmission Date: 20080115
  Serious: Yes (Other)
  Sender: FDA-Public Use
  Company Number: US-PFIZER INC-2007071692

PATIENT
  Sex: Female
  Weight: 49.9 kg

DRUGS (2)
  1. CHANTIX [Suspect]
     Indication: SMOKING CESSATION THERAPY
     Dates: start: 20070814, end: 20070817
  2. DILANTIN [Concomitant]
     Dosage: DAILY DOSE:450MG

REACTIONS (4)
  - ASTHENIA [None]
  - DISORIENTATION [None]
  - DIZZINESS [None]
  - SKIN IRRITATION [None]
